FAERS Safety Report 23296664 (Version 1)
Quarter: 2023Q4

REPORT INFORMATION
  Report Type: Spontaneous
  Country: JP (occurrence: JP)
  Receive Date: 20231214
  Receipt Date: 20231214
  Transmission Date: 20240110
  Serious: Yes (Death, Hospitalization, Other)
  Sender: FDA-Public Use
  Company Number: JP-NOVITIUMPHARMA-2023JPNVP02144

PATIENT
  Age: 45 Year
  Sex: Female

DRUGS (4)
  1. SULFAMETHOXAZOLE\TRIMETHOPRIM [Suspect]
     Active Substance: SULFAMETHOXAZOLE\TRIMETHOPRIM
     Indication: Stenotrophomonas bacteraemia
  2. MEROPENEM [Concomitant]
     Active Substance: MEROPENEM
     Indication: Pyrexia
  3. TEICOPLANIN [Concomitant]
     Active Substance: TEICOPLANIN
     Indication: Pyrexia
  4. MICAFUNGIN [Concomitant]
     Active Substance: MICAFUNGIN SODIUM
     Indication: Pyrexia

REACTIONS (3)
  - Septic shock [Fatal]
  - Cellulitis [Unknown]
  - Neutropenia [Unknown]
